FAERS Safety Report 21751335 (Version 2)
Quarter: 2023Q1

REPORT INFORMATION
  Report Type: Report from Study
  Country: GR (occurrence: GR)
  Receive Date: 20221220
  Receipt Date: 20230126
  Transmission Date: 20230417
  Serious: Yes (Other)
  Sender: FDA-Public Use
  Company Number: GR-BAYER-2022A170969

PATIENT
  Age: 70 Year
  Sex: Male

DRUGS (5)
  1. RIVAROXABAN [Suspect]
     Active Substance: RIVAROXABAN
     Indication: Product used for unknown indication
     Dosage: 15 MG
     Route: 048
  2. TICAGRELOR [Interacting]
     Active Substance: TICAGRELOR
  3. ATORVASTATIN [Concomitant]
     Active Substance: ATORVASTATIN
  4. ARB [LOSARTAN POTASSIUM] [Concomitant]
  5. ATENOLOL [Concomitant]
     Active Substance: ATENOLOL

REACTIONS (3)
  - Myocardial infarction [Unknown]
  - Epistaxis [Unknown]
  - Labelled drug-drug interaction medication error [Unknown]
